FAERS Safety Report 15203250 (Version 7)
Quarter: 2019Q1

REPORT INFORMATION
  Report Type: Spontaneous
  Country: ES (occurrence: ES)
  Receive Date: 20180726
  Receipt Date: 20190201
  Transmission Date: 20190417
  Serious: Yes (Other)
  Sender: FDA-Public Use
  Company Number: PHHY2018ES056176

PATIENT
  Age: 82 Year
  Sex: Female

DRUGS (7)
  1. DICLOFENAC [Suspect]
     Active Substance: DICLOFENAC
     Indication: EYE IRRITATION
  2. TOBRAMYCIN. [Concomitant]
     Active Substance: TOBRAMYCIN
     Indication: EYE BURNS
  3. TOBRAMYCIN. [Concomitant]
     Active Substance: TOBRAMYCIN
     Indication: EYE BURNS
  4. TOBRAMYCIN. [Concomitant]
     Active Substance: TOBRAMYCIN
     Indication: OCULAR HYPERAEMIA
  5. DICLOFENAC [Suspect]
     Active Substance: DICLOFENAC
     Indication: OCULAR HYPERAEMIA
     Dosage: UNK
     Route: 061
  6. DICLOFENAC [Suspect]
     Active Substance: DICLOFENAC
     Indication: OCULAR HYPERAEMIA
  7. TOBRAMYCIN. [Concomitant]
     Active Substance: TOBRAMYCIN
     Indication: OCULAR HYPERAEMIA
     Dosage: UNK
     Route: 065

REACTIONS (7)
  - Eye pain [Unknown]
  - Conjunctival hyperaemia [Recovering/Resolving]
  - Corneal thinning [Not Recovered/Not Resolved]
  - Product use in unapproved indication [Unknown]
  - Ulcerative keratitis [Recovered/Resolved]
  - Vision blurred [Unknown]
  - Toxicity to various agents [Recovering/Resolving]
